FAERS Safety Report 24607697 (Version 1)
Quarter: 2024Q4

REPORT INFORMATION
  Report Type: Spontaneous
  Country: US (occurrence: US)
  Receive Date: 20241112
  Receipt Date: 20241112
  Transmission Date: 20250114
  Serious: Yes (Other)
  Sender: ABON PHARMACEUTICALS LLC
  Company Number: US-ABP-000065

PATIENT
  Age: 74 Year
  Sex: Male

DRUGS (2)
  1. CARBAMAZEPINE [Suspect]
     Active Substance: CARBAMAZEPINE
     Indication: Facial pain
     Route: 065
  2. GABAPENTIN [Suspect]
     Active Substance: GABAPENTIN
     Indication: Facial pain
     Route: 065

REACTIONS (4)
  - Facial pain [Recovered/Resolved]
  - Condition aggravated [Recovered/Resolved]
  - Drug ineffective [Unknown]
  - Drug intolerance [Unknown]
